FAERS Safety Report 13229346 (Version 1)
Quarter: 2017Q1

REPORT INFORMATION
  Report Type: Spontaneous
  Country: US (occurrence: US)
  Receive Date: 20170213
  Receipt Date: 20170213
  Transmission Date: 20170428
  Serious: Yes (Other)
  Sender: FDA-Public Use
  Company Number: None

PATIENT
  Age: 75 Year
  Sex: Male
  Weight: 85.5 kg

DRUGS (13)
  1. ASPIRIN. [Concomitant]
     Active Substance: ASPIRIN
  2. NEXIUM [Concomitant]
     Active Substance: ESOMEPRAZOLE MAGNESIUM
  3. VITAMIN B12 [Concomitant]
     Active Substance: CYANOCOBALAMIN
  4. REPATHA [Suspect]
     Active Substance: EVOLOCUMAB
     Indication: BLOOD CHOLESTEROL ABNORMAL
     Dosage: ?          QUANTITY:1 INJECTION(S);OTHER FREQUENCY:1 EA 2 WKS;?
     Route: 030
     Dates: start: 20170120, end: 20170208
  5. METOPROLOL. [Concomitant]
     Active Substance: METOPROLOL
  6. FLAX SEED MEAL [Concomitant]
  7. LIQUID COQ10 [Concomitant]
  8. PSYLLIUM [Concomitant]
     Active Substance: PLANTAGO SEED
  9. FISH OIL [Concomitant]
     Active Substance: FISH OIL
  10. TYLENOL [Concomitant]
     Active Substance: ACETAMINOPHEN
  11. FLUTICASONE. [Concomitant]
     Active Substance: FLUTICASONE
  12. FEXOFENADINE [Concomitant]
     Active Substance: FEXOFENADINE\FEXOFENADINE HYDROCHLORIDE
  13. ISOSORBIDE. [Concomitant]
     Active Substance: ISOSORBIDE

REACTIONS (6)
  - Allergic respiratory symptom [None]
  - Musculoskeletal discomfort [None]
  - Muscular weakness [None]
  - Arthralgia [None]
  - Back pain [None]
  - Nasal congestion [None]

NARRATIVE: CASE EVENT DATE: 20170120
